FAERS Safety Report 10356581 (Version 5)
Quarter: 2015Q3

REPORT INFORMATION
  Report Type: Spontaneous
  Country: US (occurrence: US)
  Receive Date: 20140801
  Receipt Date: 20150820
  Transmission Date: 20151125
  Serious: Yes (Hospitalization, Other)
  Sender: FDA-Public Use
  Company Number: US-PFIZER INC-2014211012

PATIENT
  Age: 73 Year
  Sex: Female
  Weight: 43.99 kg

DRUGS (10)
  1. VFEND [Suspect]
     Active Substance: VORICONAZOLE
     Indication: ASPERGILLUS INFECTION
     Dosage: 200 MG, 2X/DAY (1 HOUR BEFORE OR AFTER I HAVE EATEN)
     Route: 048
  2. GINKGO [Concomitant]
     Active Substance: GINKGO
     Dosage: UNK
  3. DILANTIN [Concomitant]
     Active Substance: PHENYTOIN
     Indication: SEIZURE
     Dosage: 300 MG, 1X/DAY
  4. MONTELUKAST [Concomitant]
     Active Substance: MONTELUKAST SODIUM
     Indication: SINUS DISORDER
     Dosage: UNK
  5. SENNA LAXATIVE [Concomitant]
     Active Substance: SENNOSIDES A AND B
     Dosage: UNK
  6. IRON [Concomitant]
     Active Substance: IRON
     Dosage: UNK
  7. CHONDROITIN [Concomitant]
     Active Substance: CHONDROITIN
     Dosage: UNK
  8. ZOFRAN [Concomitant]
     Active Substance: ONDANSETRON HYDROCHLORIDE
     Dosage: UNK
  9. VITAMIN C [Concomitant]
     Active Substance: ASCORBIC ACID
     Dosage: UNK
  10. FLUTICASONE PROPIONATE, SALMETEROL XINAFOATE [Concomitant]
     Indication: LUNG DISORDER
     Dosage: UNK (TAKES 2 PUFFS A DAY)

REACTIONS (10)
  - Vomiting [Unknown]
  - Anaemia [Unknown]
  - Body height decreased [Unknown]
  - Diarrhoea [Unknown]
  - Colon cancer [Not Recovered/Not Resolved]
  - Nausea [Unknown]
  - Dehydration [Unknown]
  - Poor venous access [Unknown]
  - Neoplasm recurrence [Not Recovered/Not Resolved]
  - Weight decreased [Not Recovered/Not Resolved]

NARRATIVE: CASE EVENT DATE: 201411
